FAERS Safety Report 8047850-0 (Version None)
Quarter: 2012Q1

REPORT INFORMATION
  Report Type: 
  Country: None (occurrence: None)
  Receive Date: 20120116
  Receipt Date: 20120110
  Transmission Date: 20120608
  Serious: Yes (Death, Other)
  Sender: FDA-Public Use
  Company Number: GB-BAXTER-2012BH001186

PATIENT
  Age: 44 Year
  Sex: Female

DRUGS (6)
  1. CORTICOSTEROIDS [Suspect]
     Indication: WEGENER'S GRANULOMATOSIS
     Route: 042
  2. FLUCONAZOLE [Concomitant]
     Indication: OESOPHAGEAL CANDIDIASIS
     Route: 065
  3. PROTON PUMP INHIBITORS [Concomitant]
     Indication: OESOPHAGEAL CANDIDIASIS
     Route: 065
  4. CYCLOPHOSPHAMIDE [Suspect]
     Indication: WEGENER'S GRANULOMATOSIS
     Route: 042
  5. PREDNISOLONE [Concomitant]
     Indication: WEGENER'S GRANULOMATOSIS
     Route: 065
  6. METHOTREXATE [Concomitant]
     Indication: WEGENER'S GRANULOMATOSIS
     Route: 065
     Dates: start: 20061001

REACTIONS (5)
  - LIVER FUNCTION TEST ABNORMAL [None]
  - PANCYTOPENIA [None]
  - PNEUMOCYSTIS JIROVECI PNEUMONIA [None]
  - OESOPHAGEAL ULCER [None]
  - PULMONARY HAEMORRHAGE [None]
